FAERS Safety Report 10287303 (Version 2)
Quarter: 2014Q3

REPORT INFORMATION
  Report Type: Spontaneous
  Country: GB (occurrence: GB)
  Receive Date: 20140709
  Receipt Date: 20140825
  Transmission Date: 20150326
  Serious: Yes (Death)
  Sender: FDA-Public Use
  Company Number: GB-BRISTOL-MYERS SQUIBB COMPANY-21182688

PATIENT
  Age: 35 Year
  Sex: Male
  Weight: 112.3 kg

DRUGS (3)
  1. ARIPIPRAZOLE [Suspect]
     Active Substance: ARIPIPRAZOLE
     Indication: SCHIZOPHRENIA
     Dosage: 2013-
     Route: 048
     Dates: start: 2013
  2. ARIPIPRAZOLE [Suspect]
     Active Substance: ARIPIPRAZOLE
     Indication: WEIGHT INCREASED
     Dosage: 2013-
     Route: 048
     Dates: start: 2013
  3. CLOZARIL [Suspect]
     Active Substance: CLOZAPINE
     Indication: SCHIZOPHRENIA
     Dosage: CHANGED TO UNKNOWN DOSE ON 03 JUN 2010.?2008-
     Route: 048
     Dates: start: 2008

REACTIONS (2)
  - Sudden death [Fatal]
  - Off label use [Unknown]

NARRATIVE: CASE EVENT DATE: 20140621
